FAERS Safety Report 23584121 (Version 1)
Quarter: 2024Q1

REPORT INFORMATION
  Report Type: Spontaneous
  Country: IT (occurrence: IT)
  Receive Date: 20240301
  Receipt Date: 20240301
  Transmission Date: 20240410
  Serious: Yes (Death, Other)
  Sender: FDA-Public Use
  Company Number: IT-MINISAL02-970990

PATIENT
  Age: 64 Year
  Sex: Male

DRUGS (1)
  1. ACETAMINOPHEN [Suspect]
     Active Substance: ACETAMINOPHEN
     Indication: Product used for unknown indication
     Dosage: UNK,INFORMATION REGARDING DOSAGE AND DATE OF THERAPY IS CURRENTLY UNKNOWN; HAVE BEEN REQUESTED AND A
     Route: 048

REACTIONS (5)
  - Chronic kidney disease [Fatal]
  - Encephalopathy [Fatal]
  - Poisoning [Fatal]
  - Liver disorder [Fatal]
  - Prostatitis [Fatal]

NARRATIVE: CASE EVENT DATE: 20231230
